FAERS Safety Report 20827597 (Version 1)
Quarter: 2022Q2

REPORT INFORMATION
  Report Type: Report from Study
  Country: BR (occurrence: BR)
  Receive Date: 20220513
  Receipt Date: 20220513
  Transmission Date: 20220721
  Serious: Yes (Other)
  Sender: FDA-Public Use
  Company Number: BR-AMERICAN REGENT INC-2022001323

PATIENT
  Age: 37 Year
  Sex: Male

DRUGS (2)
  1. VENOFER [Suspect]
     Active Substance: IRON SUCROSE
     Indication: Malabsorption
     Dosage: 2 VIALS EVERY 3 DAYS (HAD RECEIVED 7 DOSES)
     Dates: end: 20220422
  2. ENTYVIO [Suspect]
     Active Substance: VEDOLIZUMAB
     Indication: Product used for unknown indication
     Dosage: UNK
     Route: 065

REACTIONS (16)
  - Hepatic cirrhosis [Unknown]
  - Diabetes mellitus [Unknown]
  - Haemorrhage [Recovered/Resolved]
  - Adverse event [Unknown]
  - Anaemia [Unknown]
  - Colitis [Unknown]
  - Serum ferritin decreased [Unknown]
  - Sluggishness [Recovered/Resolved]
  - Diabetes mellitus [Recovered/Resolved]
  - Food intolerance [Unknown]
  - Malaise [Unknown]
  - Peripheral swelling [Unknown]
  - Peripheral swelling [Recovered/Resolved]
  - Asthenia [Recovered/Resolved]
  - Vomiting [Unknown]
  - Diarrhoea [Recovered/Resolved]

NARRATIVE: CASE EVENT DATE: 20220401
